FAERS Safety Report 10196992 (Version 1)
Quarter: 2014Q2

REPORT INFORMATION
  Report Type: Report from Study
  Country: US (occurrence: US)
  Receive Date: 20140527
  Receipt Date: 20140527
  Transmission Date: 20141212
  Serious: Yes (Hospitalization)
  Sender: FDA-Public Use
  Company Number: US-ABBVIE-14P-163-1238181-00

PATIENT
  Age: 46 Year
  Sex: Male

DRUGS (11)
  1. HUMIRA [Suspect]
     Indication: CROHN^S DISEASE
     Dates: end: 201405
  2. HUMIRA [Suspect]
     Dates: start: 201405
  3. BUSPIRONE [Suspect]
     Indication: MENTAL DISORDER
  4. NORCO [Concomitant]
     Indication: ABDOMINAL PAIN
  5. REMERON [Concomitant]
     Indication: MENTAL DISORDER
     Dates: start: 2007
  6. VALIUM [Concomitant]
     Indication: INSOMNIA
     Dosage: AT NIGHT
  7. VALIUM [Concomitant]
     Indication: ANXIETY
  8. AMBIEN [Concomitant]
     Indication: INSOMNIA
     Dosage: AT BEDTIME
  9. POTASSIUM [Concomitant]
     Indication: LARGE INTESTINE OPERATION
  10. LOMOTIL [Concomitant]
     Indication: DIARRHOEA
  11. PROZAC [Concomitant]
     Indication: MENTAL DISORDER

REACTIONS (3)
  - Intestinal obstruction [Recovering/Resolving]
  - Abdominal pain [Recovering/Resolving]
  - Mobility decreased [Recovered/Resolved]
